FAERS Safety Report 19223860 (Version 1)
Quarter: 2021Q2

REPORT INFORMATION
  Report Type: Spontaneous
  Country: US (occurrence: US)
  Receive Date: 20210505
  Receipt Date: 20210505
  Transmission Date: 20210717
  Serious: No
  Sender: FDA-Public Use
  Company Number: US-ROCHE-2588548

PATIENT
  Sex: Female

DRUGS (1)
  1. ESBRIET [Suspect]
     Active Substance: PIRFENIDONE
     Indication: IDIOPATHIC PULMONARY FIBROSIS
     Dosage: 1 TABLET THRICE A DAY FOR 1 WEEK, THEN 2 TABLET THRICE A DAY FOR NEXT WEEK AND THEN 3 TABLETS THRICE
     Route: 048
     Dates: start: 202004

REACTIONS (2)
  - Upper respiratory tract congestion [Recovered/Resolved]
  - Dizziness [Unknown]
